FAERS Safety Report 6988577-3 (Version None)
Quarter: 2010Q3

REPORT INFORMATION
  Report Type: 
  Country: None (occurrence: None)
  Receive Date: 20100916
  Receipt Date: 20100908
  Transmission Date: 20110219
  Serious: Yes (Death, Hospitalization)
  Sender: FDA-Public Use
  Company Number: MY-BRISTOL-MYERS SQUIBB COMPANY-15285315

PATIENT
  Age: 68 Year
  Sex: Male
  Weight: 53 kg

DRUGS (3)
  1. ERBITUX [Suspect]
     Indication: NASOPHARYNGEAL CANCER
     Dosage: TOTAL DOSE 3076MG
     Route: 042
     Dates: start: 20100524, end: 20100709
  2. CISPLATIN [Suspect]
     Indication: NASOPHARYNGEAL CANCER
     Dosage: TOTAL DOSE 238MG
     Route: 042
     Dates: start: 20100524, end: 20100709
  3. FLUOROURACIL [Suspect]
     Indication: NASOPHARYNGEAL CANCER
     Route: 042
     Dates: start: 20100524

REACTIONS (4)
  - CONFUSIONAL STATE [None]
  - DEATH [None]
  - PANCYTOPENIA [None]
  - PNEUMONIA [None]
